FAERS Safety Report 12892763 (Version 1)
Quarter: 2016Q4

REPORT INFORMATION
  Report Type: Spontaneous
  Country: US (occurrence: US)
  Receive Date: 20161028
  Receipt Date: 20161028
  Transmission Date: 20170207
  Serious: No
  Sender: FDA-Public Use
  Company Number: None

PATIENT

DRUGS (2)
  1. CHANTIX [Suspect]
     Active Substance: VARENICLINE TARTRATE
  2. CHEMET [Suspect]
     Active Substance: SUCCIMER

REACTIONS (9)
  - Anxiety disorder [None]
  - Mood swings [None]
  - Loss of employment [None]
  - Medication error [None]
  - Adverse drug reaction [None]
  - Crying [None]
  - Seizure [None]
  - Panic disorder [None]
  - Insomnia [None]
